FAERS Safety Report 24692689 (Version 1)
Quarter: 2024Q4

REPORT INFORMATION
  Report Type: Spontaneous
  Country: IN (occurrence: IN)
  Receive Date: 20241203
  Receipt Date: 20241203
  Transmission Date: 20250115
  Serious: Yes (Other)
  Sender: PFIZER
  Company Number: IN-PFIZER INC-202200661889

PATIENT
  Age: 70 Year
  Sex: Female

DRUGS (3)
  1. PALBOCICLIB [Suspect]
     Active Substance: PALBOCICLIB
     Dosage: 21/28 DAYS
     Route: 048
     Dates: start: 20210409
  2. LETROZOLE [Concomitant]
     Active Substance: LETROZOLE
     Dosage: 21/28 DAYS X 3 MONTHS
     Route: 048
     Dates: start: 202104
  3. CALCIUM\CHOLECALCIFEROL [Concomitant]
     Active Substance: CALCIUM\CHOLECALCIFEROL
     Dosage: 500 MG, 1X/DAY
     Route: 048

REACTIONS (16)
  - Malaria [Unknown]
  - Breast discharge infected [Unknown]
  - Tumour ulceration [Unknown]
  - Breast discharge [Unknown]
  - Asthenia [Not Recovered/Not Resolved]
  - Headache [Unknown]
  - Vomiting [Unknown]
  - Vision blurred [Unknown]
  - Diplopia [Unknown]
  - Illness [Unknown]
  - Pain [Unknown]
  - Postmenopause [Unknown]
  - Wound [Unknown]
  - Haemoglobin decreased [Unknown]
  - Eastern Cooperative Oncology Group performance status worsened [Unknown]
  - Neoplasm progression [Unknown]

NARRATIVE: CASE EVENT DATE: 20240101
